FAERS Safety Report 13738871 (Version 1)
Quarter: 2017Q3

REPORT INFORMATION
  Report Type: Spontaneous
  Country: GB (occurrence: GB)
  Receive Date: 20170710
  Receipt Date: 20170710
  Transmission Date: 20171127
  Serious: Yes (Other)
  Sender: FDA-Public Use
  Company Number: PHHY2017GB097021

PATIENT
  Age: 71 Year
  Sex: Male

DRUGS (3)
  1. TAMSULOSINE [Concomitant]
     Active Substance: TAMSULOSIN HYDROCHLORIDE
     Indication: PRODUCT USED FOR UNKNOWN INDICATION
     Route: 065
  2. VOLTAROL [Suspect]
     Active Substance: DICLOFENAC SODIUM
     Indication: ULTRASOUND PROSTATE
     Dosage: 50 MG, UNK
     Route: 054
     Dates: start: 20170620, end: 20170620
  3. VOLTRAL [Concomitant]
     Active Substance: DICLOFENAC SODIUM
     Indication: PAIN
     Route: 054

REACTIONS (2)
  - Speech disorder [Recovering/Resolving]
  - Dyspnoea [Recovered/Resolved]

NARRATIVE: CASE EVENT DATE: 20170620
